FAERS Safety Report 4906939-2 (Version None)
Quarter: 2006Q1

REPORT INFORMATION
  Report Type: 
  Country: None (occurrence: None)
  Receive Date: 20060207
  Receipt Date: 20060202
  Transmission Date: 20060701
  Serious: Yes (Death, Hospitalization)
  Sender: FDA-Public Use
  Company Number: TCI2006A00060

PATIENT
  Age: 75 Year
  Sex: Male

DRUGS (15)
  1. LEUPROLIDE ACETATE [Suspect]
     Indication: PROSTATE CANCER
     Dosage: 3.75 MG (3.75 MG, 1 IN 28 D), SUBCUTANEOUS
     Route: 058
     Dates: start: 20051130, end: 20060116
  2. TECHNIS (IFENPRODIL TARTRATE) [Concomitant]
  3. RIZE (CLOTIAZEPAM) [Concomitant]
  4. MIYA BM (CLOSTRIDIUM BUTYRICUM) (FINE GRANULES) [Concomitant]
  5. MAGNESIUM OXIDE [Concomitant]
  6. GLYCYOL (GLYCYOL) [Concomitant]
  7. URSO 250 [Concomitant]
  8. BEZATOL SR (BEZAFIBRATE) [Concomitant]
  9. FAMOTIDINE [Concomitant]
  10. HARNAL D (TAMSULOSIN HYDROCHLORIDE) [Concomitant]
  11. LACTOSE [Concomitant]
  12. POSTERISAN FORTE (POSTERISAN) [Concomitant]
  13. MOHRUS (KETOPROFEN) [Concomitant]
  14. CASODEX [Concomitant]
  15. VOLTAREN [Concomitant]

REACTIONS (9)
  - ATRIOVENTRICULAR BLOCK [None]
  - CARDIAC ARREST [None]
  - DISSEMINATED INTRAVASCULAR COAGULATION [None]
  - FUNGAL INFECTION [None]
  - GASTRIC HAEMORRHAGE [None]
  - GASTRIC ULCER [None]
  - INTERSTITIAL LUNG DISEASE [None]
  - LYMPHOCYTE STIMULATION TEST POSITIVE [None]
  - MYOCARDIAL INFARCTION [None]
